FAERS Safety Report 21800500 (Version 1)
Quarter: 2022Q4

REPORT INFORMATION
  Report Type: Spontaneous
  Country: CN (occurrence: CN)
  Receive Date: 20221230
  Receipt Date: 20221230
  Transmission Date: 20230113
  Serious: Yes (Other)
  Sender: FDA-Public Use
  Company Number: CN-Merck Healthcare KGaA-9374803

PATIENT
  Age: 72 Year
  Sex: Male
  Weight: 68 kg

DRUGS (5)
  1. ERBITUX [Suspect]
     Active Substance: CETUXIMAB
     Indication: Rectal cancer stage IV
     Dosage: 100 MG, SINGLE
     Route: 041
     Dates: start: 20220627, end: 20220627
  2. ERBITUX [Suspect]
     Active Substance: CETUXIMAB
     Dosage: 700 MG, SINGLE
     Route: 041
     Dates: start: 20220627, end: 20220627
  3. OXALIPLATIN [Suspect]
     Active Substance: OXALIPLATIN
     Indication: Rectal cancer stage IV
     Dosage: 145 MG, SINGLE
     Route: 041
     Dates: start: 20220627, end: 20220627
  4. FLUOROURACIL [Suspect]
     Active Substance: FLUOROURACIL
     Indication: Rectal cancer stage IV
     Dosage: 4000 MG, SINGLE
     Route: 041
     Dates: start: 20220627, end: 20220627
  5. FLUOROURACIL [Suspect]
     Active Substance: FLUOROURACIL
     Dosage: 700 MG, SINGLE
     Route: 041
     Dates: start: 20220627, end: 20220627

REACTIONS (1)
  - Myelosuppression [Unknown]

NARRATIVE: CASE EVENT DATE: 20220706
